FAERS Safety Report 10015813 (Version 1)
Quarter: 2014Q1

REPORT INFORMATION
  Report Type: Spontaneous
  Country: CA (occurrence: CA)
  Receive Date: 20140317
  Receipt Date: 20140317
  Transmission Date: 20141002
  Serious: Yes (Life-Threatening)
  Sender: FDA-Public Use
  Company Number: CA-GLAXOSMITHKLINE-A1064629A

PATIENT
  Age: 81 Year
  Sex: Female
  Weight: 61.4 kg

DRUGS (11)
  1. ADVAIR [Suspect]
     Indication: PRODUCT USED FOR UNKNOWN INDICATION
     Route: 055
  2. ACTOS [Concomitant]
  3. ASAPHEN [Concomitant]
  4. CALCITE-D [Concomitant]
  5. DIOVAN HCT [Concomitant]
  6. NEXIUM [Concomitant]
  7. ALENDRONATE [Concomitant]
  8. PLAVIX [Concomitant]
  9. PRAVASTATIN [Concomitant]
  10. BISOPROLOL [Concomitant]
  11. SYNTHROID [Concomitant]

REACTIONS (3)
  - Blindness [Recovered/Resolved]
  - VIIth nerve paralysis [Recovered/Resolved]
  - Heart rate decreased [Recovered/Resolved]
